FAERS Safety Report 24909844 (Version 1)
Quarter: 2025Q1

REPORT INFORMATION
  Report Type: Spontaneous
  Country: US (occurrence: US)
  Receive Date: 20250131
  Receipt Date: 20250131
  Transmission Date: 20250408
  Serious: No
  Sender: PRASCO
  Company Number: US-Prasco Laboratories-PRAS20250044

PATIENT
  Age: 59 Year
  Sex: Female

DRUGS (1)
  1. ESTRADIOL [Suspect]
     Active Substance: ESTRADIOL
     Indication: Atrophic vulvovaginitis
     Route: 067

REACTIONS (4)
  - Therapeutic product effect decreased [Not Recovered/Not Resolved]
  - Off label use [None]
  - Wrong technique in product usage process [None]
  - Product storage error [None]

NARRATIVE: CASE EVENT DATE: 20250126
